FAERS Safety Report 18279283 (Version 9)
Quarter: 2022Q1

REPORT INFORMATION
  Report Type: Report from Study
  Country: CA (occurrence: CA)
  Receive Date: 20200917
  Receipt Date: 20220206
  Transmission Date: 20220423
  Serious: Yes (Hospitalization, Other)
  Sender: FDA-Public Use
  Company Number: PHHY2015CA053717

PATIENT
  Age: 67 Year
  Sex: Male

DRUGS (4)
  1. SANDOSTATIN LAR DEPOT [Suspect]
     Active Substance: OCTREOTIDE ACETATE
     Indication: Carcinoid tumour
     Dosage: 30 MG, QMO (EVERY 4 WEEKS)
     Route: 030
     Dates: start: 20141016
  2. SANDOSTATIN LAR DEPOT [Suspect]
     Active Substance: OCTREOTIDE ACETATE
  3. SANDOSTATIN LAR DEPOT [Suspect]
     Active Substance: OCTREOTIDE ACETATE
  4. ASPIRIN [Concomitant]
     Active Substance: ASPIRIN
     Indication: Product used for unknown indication
     Dosage: UNK
     Route: 065

REACTIONS (18)
  - Pneumonia [Recovered/Resolved]
  - Dyspnoea [Recovered/Resolved]
  - Transient ischaemic attack [Unknown]
  - Hypoaesthesia [Unknown]
  - Dizziness [Unknown]
  - Blood pressure systolic increased [Unknown]
  - Abscess [Unknown]
  - Pyrexia [Unknown]
  - Chills [Unknown]
  - Lethargy [Unknown]
  - Decreased appetite [Unknown]
  - Body temperature decreased [Unknown]
  - White blood cell count increased [Unknown]
  - Red blood cell count increased [Unknown]
  - Chronic obstructive pulmonary disease [Unknown]
  - Asthenia [Unknown]
  - Swelling face [Unknown]
  - Peripheral swelling [Unknown]

NARRATIVE: CASE EVENT DATE: 20150723
